FAERS Safety Report 19964230 (Version 1)
Quarter: 2021Q4

REPORT INFORMATION
  Report Type: Spontaneous
  Country: US (occurrence: US)
  Receive Date: 20211018
  Receipt Date: 20211018
  Transmission Date: 20220303
  Serious: Yes (Other)
  Sender: FDA-Public Use
  Company Number: US-BAYER-2021A227370

PATIENT
  Age: 41 Year
  Sex: Male

DRUGS (1)
  1. KOGENATE FS [Suspect]
     Active Substance: ANTIHEMOPHILIC FACTOR, HUMAN RECOMBINANT
     Dosage: 2021 IU, UNK
     Route: 042

REACTIONS (3)
  - Stent removal [None]
  - Nephrolithiasis [None]
  - Headache [None]

NARRATIVE: CASE EVENT DATE: 20211005
